FAERS Safety Report 18328909 (Version 4)
Quarter: 2020Q4

REPORT INFORMATION
  Report Type: Other
  Country: US (occurrence: US)
  Receive Date: 20200930
  Receipt Date: 20201124
  Transmission Date: 20210113
  Serious: Yes (Hospitalization, Other)
  Sender: FDA-Public Use
  Company Number: US-ROCHE-2681095

PATIENT
  Age: 55 Year
  Sex: Female
  Weight: 47 kg

DRUGS (29)
  1. PRIMIDONE. [Concomitant]
     Active Substance: PRIMIDONE
     Indication: TREMOR
     Dates: start: 202007
  2. HYDROXYZINE [Concomitant]
     Active Substance: HYDROXYZINE HYDROCHLORIDE
     Indication: HYPERSENSITIVITY
  3. PROTONIX [Concomitant]
     Active Substance: PANTOPRAZOLE SODIUM
  4. TUMS [Concomitant]
     Active Substance: CALCIUM CARBONATE
     Dosage: CHEW 2 TABLETS 2 TIMES DAILY
  5. SEROQUEL [Concomitant]
     Active Substance: QUETIAPINE FUMARATE
     Dosage: TK 1 T PO D HS
  6. GABAPENTIN. [Concomitant]
     Active Substance: GABAPENTIN
     Indication: TREMOR
     Dates: start: 2016, end: 202007
  7. HYDROXYZINE [Concomitant]
     Active Substance: HYDROXYZINE HYDROCHLORIDE
     Indication: PRURITUS
  8. TOPAMAX [Concomitant]
     Active Substance: TOPIRAMATE
     Indication: HEADACHE
  9. FLORINEF ACETATE [Concomitant]
     Active Substance: FLUDROCORTISONE ACETATE
     Dosage: 0.1MG BY MOUTH DAILY
     Route: 048
  10. OCREVUS [Suspect]
     Active Substance: OCRELIZUMAB
     Route: 042
     Dates: start: 202006
  11. ZOFRAN [Concomitant]
     Active Substance: ONDANSETRON HYDROCHLORIDE
     Indication: NAUSEA
     Dosage: TAKEN AS NEEDED
  12. CYMBALTA [Concomitant]
     Active Substance: DULOXETINE HYDROCHLORIDE
     Indication: DEPRESSION
  13. POLYETHYLENE GLYCOL [Concomitant]
     Active Substance: POLYETHYLENE GLYCOLS
     Dosage: TAKE 1 SCOOPFUL BY MOUTH DAILY
     Route: 048
  14. OCREVUS [Suspect]
     Active Substance: OCRELIZUMAB
     Indication: PRIMARY PROGRESSIVE MULTIPLE SCLEROSIS
     Route: 042
     Dates: start: 201807, end: 201807
  15. BACLOFEN. [Concomitant]
     Active Substance: BACLOFEN
     Indication: TREMOR
     Dates: start: 202007
  16. BUSPAR [Concomitant]
     Active Substance: BUSPIRONE HYDROCHLORIDE
     Indication: DEPRESSION
  17. VISTARIL [Concomitant]
     Active Substance: HYDROXYZINE PAMOATE
     Indication: PRURITUS
     Dosage: 1 CAPS BY MOUTH 3 TIMES DAILY AS NEEDED
     Route: 048
  18. TYLENOL [Concomitant]
     Active Substance: ACETAMINOPHEN
  19. REMERON [Concomitant]
     Active Substance: MIRTAZAPINE
     Indication: DEPRESSION
  20. SEROQUEL [Concomitant]
     Active Substance: QUETIAPINE FUMARATE
     Dosage: NIGHTLY
     Route: 048
  21. PRUCALOPRIDE SUCCINATE [Concomitant]
     Active Substance: PRUCALOPRIDE SUCCINATE
     Route: 048
  22. ALENDRONATE [Concomitant]
     Active Substance: ALENDRONATE SODIUM
     Route: 048
  23. KEPPRA [Concomitant]
     Active Substance: LEVETIRACETAM
     Indication: TREMOR
     Dates: start: 2016, end: 202007
  24. BENTYL [Concomitant]
     Active Substance: DICYCLOMINE HYDROCHLORIDE
     Indication: ABDOMINAL PAIN UPPER
     Dates: start: 201811
  25. CYMBALTA [Concomitant]
     Active Substance: DULOXETINE HYDROCHLORIDE
     Indication: PAIN
  26. ROBAXIN [Concomitant]
     Active Substance: METHOCARBAMOL
     Dosage: 1 TABLET BY MOUTH 3 TIMES DAILY
     Route: 048
  27. PROAMATINE [Concomitant]
     Active Substance: MIDODRINE HYDROCHLORIDE
     Dosage: TAKE 1 TABLET BY MOUTH THREE TIMES DAILY
  28. REMERON [Concomitant]
     Active Substance: MIRTAZAPINE
     Indication: ANXIETY
  29. FOSAMAX [Concomitant]
     Active Substance: ALENDRONATE SODIUM
     Dosage: 1 TABLET BY MOUTH EVERY FRIDAY
     Route: 048

REACTIONS (24)
  - Coma [Recovered/Resolved]
  - Malnutrition [Not Recovered/Not Resolved]
  - Hypoaesthesia [Not Recovered/Not Resolved]
  - Gastric disorder [Recovered/Resolved]
  - Weight decreased [Not Recovered/Not Resolved]
  - Irritability [Not Recovered/Not Resolved]
  - Immunodeficiency [Unknown]
  - Fistula [Recovered/Resolved]
  - Gait disturbance [Not Recovered/Not Resolved]
  - Fibromyalgia [Unknown]
  - Poor quality sleep [Unknown]
  - Sepsis [Recovered/Resolved]
  - JC polyomavirus test positive [Not Recovered/Not Resolved]
  - Amnesia [Not Recovered/Not Resolved]
  - Emotional distress [Not Recovered/Not Resolved]
  - Abdominal pain upper [Not Recovered/Not Resolved]
  - Decreased appetite [Unknown]
  - Cyst rupture [Recovered/Resolved]
  - Constipation [Not Recovered/Not Resolved]
  - Enterocutaneous fistula [Unknown]
  - Small intestinal obstruction [Not Recovered/Not Resolved]
  - Purulent discharge [Recovered/Resolved]
  - Hernia [Recovered/Resolved]
  - Vision blurred [Not Recovered/Not Resolved]

NARRATIVE: CASE EVENT DATE: 201811
